FAERS Safety Report 12199684 (Version 5)
Quarter: 2016Q2

REPORT INFORMATION
  Report Type: Report from Study
  Country: US (occurrence: US)
  Receive Date: 20160322
  Receipt Date: 20160525
  Transmission Date: 20160815
  Serious: Yes (Hospitalization, Other)
  Sender: FDA-Public Use
  Company Number: US-BAYER-2016-049522

PATIENT
  Age: 50 Year
  Sex: Male

DRUGS (1)
  1. STIVARGA [Suspect]
     Active Substance: REGORAFENIB
     Indication: COLORECTAL CANCER
     Dosage: 160 MG, QD
     Route: 048
     Dates: start: 20160227

REACTIONS (12)
  - Abdominal pain upper [None]
  - Nasopharyngitis [None]
  - Pyrexia [None]
  - Asthenia [None]
  - Pain [None]
  - Decreased appetite [None]
  - Diarrhoea [None]
  - Palmar-plantar erythrodysaesthesia syndrome [None]
  - Cough [None]
  - Fatigue [None]
  - Wrong technique in product usage process [None]
  - Pain in extremity [None]

NARRATIVE: CASE EVENT DATE: 2016
